FAERS Safety Report 23722502 (Version 1)
Quarter: 2024Q2

REPORT INFORMATION
  Report Type: Report from Study
  Country: US (occurrence: US)
  Receive Date: 20240409
  Receipt Date: 20240409
  Transmission Date: 20240716
  Serious: No
  Sender: FDA-Public Use
  Company Number: US-E2BLSMVVAL-CLI/USA/24/0005490

PATIENT
  Age: 5 Year
  Sex: Male

DRUGS (1)
  1. SAPROPTERIN DIHYDROCHLORIDE [Suspect]
     Active Substance: SAPROPTERIN DIHYDROCHLORIDE
     Indication: Phenylketonuria
     Dosage: DAILY
     Route: 048
     Dates: start: 20240321

REACTIONS (2)
  - Nasal congestion [Unknown]
  - Seasonal allergy [Unknown]
